FAERS Safety Report 23340743 (Version 1)
Quarter: 2023Q4

REPORT INFORMATION
  Report Type: Spontaneous
  Country: US (occurrence: US)
  Receive Date: 20231227
  Receipt Date: 20231227
  Transmission Date: 20240109
  Serious: Yes (Death, Other)
  Sender: FDA-Public Use
  Company Number: US-GLENMARK PHARMACEUTICALS-2023GMK087548

PATIENT

DRUGS (32)
  1. LAMOTRIGINE [Suspect]
     Active Substance: LAMOTRIGINE
     Indication: Product used for unknown indication
     Dosage: UNK, INGESTION
     Route: 048
  2. LAMOTRIGINE [Suspect]
     Active Substance: LAMOTRIGINE
     Indication: Product used for unknown indication
     Dosage: UNK, ASPIRATION (WITH INGESTION)
     Route: 050
  3. TOPIRAMATE [Suspect]
     Active Substance: TOPIRAMATE
     Indication: Product used for unknown indication
     Dosage: UNK, INGESTION
     Route: 048
  4. TOPIRAMATE [Suspect]
     Active Substance: TOPIRAMATE
     Indication: Product used for unknown indication
     Dosage: UNK, ASPIRATION (WITH INGESTION)
     Route: 050
  5. OMEPRAZOLE [Suspect]
     Active Substance: OMEPRAZOLE
     Indication: Product used for unknown indication
     Dosage: UNK, INGESTION
     Route: 048
  6. OMEPRAZOLE [Suspect]
     Active Substance: OMEPRAZOLE
     Indication: Product used for unknown indication
     Dosage: UNK, ASPIRATION (WITH INGESTION)
     Route: 050
  7. EZETIMIBE [Suspect]
     Active Substance: EZETIMIBE
     Indication: Product used for unknown indication
     Dosage: UNK, INGESTION
     Route: 048
  8. EZETIMIBE [Suspect]
     Active Substance: EZETIMIBE
     Indication: Product used for unknown indication
     Dosage: UNK, ASPIRATION (WITH INGESTION)
     Route: 050
  9. LEVOCETIRIZINE [Suspect]
     Active Substance: LEVOCETIRIZINE
     Indication: Product used for unknown indication
     Dosage: UNK, INGESTION
     Route: 048
  10. LEVOCETIRIZINE [Suspect]
     Active Substance: LEVOCETIRIZINE
     Indication: Product used for unknown indication
     Dosage: UNK, ASPIRATION (WITH INGESTION)
     Route: 050
  11. ACETAMINOPHEN [Suspect]
     Active Substance: ACETAMINOPHEN
     Indication: Product used for unknown indication
     Dosage: UNK, INGESTION
     Route: 048
  12. ACETAMINOPHEN [Suspect]
     Active Substance: ACETAMINOPHEN
     Dosage: UNK ASPIRATION (WITH INGESTION)
     Route: 050
  13. BACLOFEN [Suspect]
     Active Substance: BACLOFEN
     Indication: Product used for unknown indication
     Dosage: UNK, INGESTION
     Route: 048
  14. BACLOFEN [Suspect]
     Active Substance: BACLOFEN
     Dosage: UNK ASPIRATION (WITH INGESTION)
     Route: 050
  15. DOXEPIN [Suspect]
     Active Substance: DOXEPIN
     Indication: Product used for unknown indication
     Dosage: UNK, INGESTION
     Route: 048
  16. DOXEPIN [Suspect]
     Active Substance: DOXEPIN
     Dosage: UNK ASPIRATION (WITH INGESTION)
     Route: 050
  17. SERTRALINE [Suspect]
     Active Substance: SERTRALINE HYDROCHLORIDE
     Indication: Product used for unknown indication
     Dosage: UNK, INGESTION
     Route: 048
  18. SERTRALINE [Suspect]
     Active Substance: SERTRALINE HYDROCHLORIDE
     Dosage: UNK ASPIRATION (WITH INGESTION)
     Route: 050
  19. PREGABALIN [Suspect]
     Active Substance: PREGABALIN
     Indication: Product used for unknown indication
     Dosage: UNK, INGESTION
     Route: 048
  20. PREGABALIN [Suspect]
     Active Substance: PREGABALIN
     Dosage: UNK ASPIRATION (WITH INGESTION)
     Route: 050
  21. HYDROCHLOROTHIAZIDE [Suspect]
     Active Substance: HYDROCHLOROTHIAZIDE
     Indication: Product used for unknown indication
     Dosage: UNK, INGESTION
     Route: 048
  22. HYDROCHLOROTHIAZIDE [Suspect]
     Active Substance: HYDROCHLOROTHIAZIDE
     Dosage: UNK ASPIRATION (WITH INGESTION)
     Route: 050
  23. DEUTETRABENAZINE [Suspect]
     Active Substance: DEUTETRABENAZINE
     Indication: Product used for unknown indication
     Dosage: UNK, INGESTION
     Route: 048
  24. DEUTETRABENAZINE [Suspect]
     Active Substance: DEUTETRABENAZINE
     Dosage: UNK ASPIRATION (WITH INGESTION)
     Route: 050
  25. CELECOXIB [Suspect]
     Active Substance: CELECOXIB
     Indication: Product used for unknown indication
     Dosage: UNK, INGESTION
     Route: 048
  26. CELECOXIB [Suspect]
     Active Substance: CELECOXIB
     Dosage: UNK ASPIRATION (WITH INGESTION)
     Route: 050
  27. DOCUSATE [Suspect]
     Active Substance: DOCUSATE
     Indication: Product used for unknown indication
     Dosage: UNK, INGESTION
     Route: 048
  28. DOCUSATE [Suspect]
     Active Substance: DOCUSATE
     Dosage: UNK ASPIRATION (WITH INGESTION)
     Route: 050
  29. MELATONIN [Suspect]
     Active Substance: MELATONIN
     Indication: Product used for unknown indication
     Dosage: UNK, INGESTION
     Route: 048
  30. MELATONIN [Suspect]
     Active Substance: MELATONIN
     Dosage: UNK ASPIRATION (WITH INGESTION)
     Route: 050
  31. VITAMIN D NOS [Suspect]
     Active Substance: VITAMIN D NOS
     Indication: Product used for unknown indication
     Dosage: UNK, INGESTION
     Route: 048
  32. VITAMIN D NOS [Suspect]
     Active Substance: VITAMIN D NOS
     Dosage: UNK ASPIRATION (WITH INGESTION)
     Route: 050

REACTIONS (1)
  - Completed suicide [Fatal]
